FAERS Safety Report 16170692 (Version 1)
Quarter: 2019Q2

REPORT INFORMATION
  Report Type: Spontaneous
  Country: AT (occurrence: AT)
  Receive Date: 20190408
  Receipt Date: 20190408
  Transmission Date: 20190711
  Serious: Yes (Hospitalization, Other)
  Sender: FDA-Public Use
  Company Number: AT-MYLANLABS-2019M1031449

PATIENT
  Age: 39 Year
  Sex: Female

DRUGS (16)
  1. ZIDOVUDINE. [Suspect]
     Active Substance: ZIDOVUDINE
     Indication: ANTIRETROVIRAL THERAPY
     Dosage: UNK,4TH THERAPY
  2. EFAVIRENZ. [Suspect]
     Active Substance: EFAVIRENZ
     Dosage: 4TH THERAPY
  3. LAMIVUDINE. [Suspect]
     Active Substance: LAMIVUDINE
     Dosage: 4TH THERAPY
  4. EFAVIRENZ. [Suspect]
     Active Substance: EFAVIRENZ
     Dosage: 3RD THERAPY
  5. LAMIVUDINE. [Suspect]
     Active Substance: LAMIVUDINE
     Dosage: 5TH THERAPY
  6. STAVUDINE. [Suspect]
     Active Substance: STAVUDINE
     Dosage: UNK
  7. DIDANOSINE. [Suspect]
     Active Substance: DIDANOSINE
     Indication: ANTIRETROVIRAL THERAPY
     Dosage: UNK
  8. EFAVIRENZ. [Suspect]
     Active Substance: EFAVIRENZ
     Indication: ANTIRETROVIRAL THERAPY
     Dosage: UNK
  9. LOPINAVIR/RITONAVIR [Suspect]
     Active Substance: LOPINAVIR\RITONAVIR
     Indication: ANTIRETROVIRAL THERAPY
     Dosage: UNK
  10. ZIDOVUDINE. [Suspect]
     Active Substance: ZIDOVUDINE
     Dosage: UNK,5TH THERAPY
  11. LAMIVUDINE. [Suspect]
     Active Substance: LAMIVUDINE
     Indication: ANTIRETROVIRAL THERAPY
     Dosage: 1ST THERAPY
  12. INDINAVIR W/RITONAVIR [Suspect]
     Active Substance: INDINAVIR\RITONAVIR
     Indication: ANTIRETROVIRAL THERAPY
     Dosage: UNK
  13. LAMIVUDINE. [Suspect]
     Active Substance: LAMIVUDINE
     Dosage: 2ND THERAPY
  14. ZIDOVUDINE. [Suspect]
     Active Substance: ZIDOVUDINE
     Dosage: UNK
  15. STAVUDINE. [Suspect]
     Active Substance: STAVUDINE
     Indication: ANTIRETROVIRAL THERAPY
     Dosage: UNK,2ND THERAPY
  16. STAVUDINE. [Suspect]
     Active Substance: STAVUDINE
     Dosage: UNK,3RD THERAPY

REACTIONS (5)
  - Rebound effect [Unknown]
  - Acute stress disorder [Unknown]
  - Drug abuse [Unknown]
  - Exposure during pregnancy [Unknown]
  - Viral load increased [Unknown]
